FAERS Safety Report 10745716 (Version 1)
Quarter: 2015Q1

REPORT INFORMATION
  Report Type: Spontaneous
  Country: US (occurrence: None)
  Receive Date: 20150127
  Receipt Date: 20150127
  Transmission Date: 20150721
  Serious: Yes (Disabling)
  Sender: FDA-Public Use
  Company Number: None

PATIENT
  Age: 48 Year
  Sex: Female
  Weight: 86.18 kg

DRUGS (2)
  1. CYMBALTA [Suspect]
     Active Substance: DULOXETINE HYDROCHLORIDE
     Indication: MENOPAUSAL DEPRESSION
     Dosage: 1 TABLET
     Route: 048
  2. CYMBALTA [Suspect]
     Active Substance: DULOXETINE HYDROCHLORIDE
     Indication: ANXIETY
     Dosage: 1 TABLET
     Route: 048

REACTIONS (7)
  - Paraesthesia [None]
  - Crying [None]
  - Heart rate increased [None]
  - Decreased activity [None]
  - Dizziness [None]
  - Drug dose omission [None]
  - Drug dependence [None]
